FAERS Safety Report 9322009 (Version 2)
Quarter: 2013Q3

REPORT INFORMATION
  Report Type: Report from Study
  Country: SE (occurrence: SE)
  Receive Date: 20130531
  Receipt Date: 20130801
  Transmission Date: 20140515
  Serious: Yes (Hospitalization, Other)
  Sender: FDA-Public Use
  Company Number: SE-ABBOTT-13P-150-1094164-00

PATIENT
  Age: 47 Year
  Sex: Male

DRUGS (5)
  1. HUMIRA [Suspect]
     Indication: CROHN^S DISEASE
     Route: 058
     Dates: start: 20070319, end: 20071011
  2. HUMIRA [Suspect]
     Route: 058
     Dates: start: 20071115
  3. HUMIRA [Suspect]
     Dosage: UNKNOWN HOW LONG 40MG/WEEK  WAS ADMINISTRATED
     Route: 058
     Dates: start: 20071228, end: 20081027
  4. PREDNISOLONE [Concomitant]
     Indication: PRODUCT USED FOR UNKNOWN INDICATION
  5. ASACOL [Concomitant]

REACTIONS (6)
  - Pneumonia [Unknown]
  - Malaise [Unknown]
  - Skin reaction [Unknown]
  - Chest pain [Unknown]
  - Pyrexia [Unknown]
  - Pneumonia mycoplasmal [Unknown]
